FAERS Safety Report 7736248-8 (Version None)
Quarter: 2011Q3

REPORT INFORMATION
  Report Type: 
  Country: None (occurrence: None)
  Receive Date: 20110902
  Receipt Date: 20110812
  Transmission Date: 20111222
  Serious: Yes (Hospitalization)
  Sender: FDA-Public Use
  Company Number: BR-001918

PATIENT
  Sex: Female
  Weight: 27.5 kg

DRUGS (1)
  1. NAGLAZYME [Suspect]
     Indication: MUCOPOLYSACCHARIDOSIS VI
     Dosage: 30 MG/KG 1X/WEEK INTRAVENOUS DRIP
     Route: 041
     Dates: start: 20071114

REACTIONS (2)
  - INFLUENZA [None]
  - TRACHEOSTOMY [None]
